FAERS Safety Report 10239628 (Version 2)
Quarter: 2014Q2

REPORT INFORMATION
  Report Type: Spontaneous
  Country: US (occurrence: US)
  Receive Date: 20140616
  Receipt Date: 20140616
  Transmission Date: 20141212
  Serious: No
  Sender: FDA-Public Use
  Company Number: US-ASTRAZENECA-2014SE30664

PATIENT
  Age: 64 Year
  Sex: Female
  Weight: 65.3 kg

DRUGS (4)
  1. PULMICORT FLEXHALER [Suspect]
     Indication: ASTHMA
     Dosage: 90 MCG, 1 PUFF IN THE MORNING AND 1 PUFF IN THE EVENING
     Route: 055
     Dates: start: 20140327
  2. NEXIUM [Suspect]
     Indication: BARRETT^S OESOPHAGUS
     Route: 048
     Dates: start: 2005
  3. VENTOLIN [Concomitant]
     Indication: ASTHMA
     Dosage: 2 PUFFS PRN
     Route: 055
  4. EVISTA [Concomitant]
     Indication: OSTEOPENIA
     Route: 048

REACTIONS (5)
  - Dyspnoea [Unknown]
  - Circumstance or information capable of leading to medication error [Unknown]
  - Device difficult to use [Unknown]
  - Off label use [Unknown]
  - Device misuse [Unknown]
